FAERS Safety Report 7094650-4 (Version None)
Quarter: 2010Q4

REPORT INFORMATION
  Report Type: 
  Country: None (occurrence: None)
  Receive Date: 20101110
  Receipt Date: 20101028
  Transmission Date: 20110411
  Serious: Yes (Hospitalization)
  Sender: FDA-Public Use
  Company Number: ES-MYLANLABS-2010S1020159

PATIENT
  Age: 73 Year
  Sex: Female

DRUGS (9)
  1. METFORMIN HCL [Suspect]
     Indication: TYPE 2 DIABETES MELLITUS
     Route: 065
  2. BISOPROLOL [Concomitant]
     Route: 065
  3. TORASEMIDE [Concomitant]
     Route: 065
  4. DIGOXIN [Concomitant]
     Route: 065
  5. ESCITALOPRAM [Concomitant]
     Route: 065
  6. LORMETAZEPAM [Concomitant]
     Route: 065
  7. TERBUTALINE SULFATE [Concomitant]
     Route: 065
  8. TIOTROPIUM BROMIDE [Concomitant]
     Route: 065
  9. INSULIN GLARGINE [Concomitant]
     Route: 065

REACTIONS (3)
  - HEPATOTOXICITY [None]
  - LACTIC ACIDOSIS [None]
  - RENAL FAILURE [None]
